FAERS Safety Report 6250935-2 (Version None)
Quarter: 2009Q2

REPORT INFORMATION
  Report Type: 
  Country: None (occurrence: None)
  Receive Date: 20090626
  Receipt Date: 20090612
  Transmission Date: 20091009
  Serious: No
  Sender: FDA-Public Use
  Company Number: 2009-198733-NL

PATIENT
  Age: 43 Year
  Sex: Female

DRUGS (4)
  1. MIRTAZAPINE [Suspect]
     Indication: DEPRESSION
     Dosage: DF
  2. CITALOPRAM HYDROBROMIDE [Concomitant]
  3. PAROXETINE HCL [Concomitant]
  4. TIANEPTINE [Concomitant]

REACTIONS (6)
  - DRUG INEFFECTIVE [None]
  - FISTULA [None]
  - MALNUTRITION [None]
  - MUSCLE ABSCESS [None]
  - SUBCUTANEOUS ABSCESS [None]
  - WHITE BLOOD CELL COUNT DECREASED [None]
